FAERS Safety Report 6086253-5 (Version None)
Quarter: 2009Q1

REPORT INFORMATION
  Report Type: 
  Country: None (occurrence: None)
  Receive Date: 20090220
  Receipt Date: 20080208
  Transmission Date: 20090719
  Serious: No
  Sender: FDA-Public Use
  Company Number: US-ASTRAZENECA-2008UW02751

PATIENT
  Sex: Male

DRUGS (3)
  1. PLENDIL [Suspect]
     Route: 048
  2. LISINOPRIL [Suspect]
     Route: 048
  3. COREG [Suspect]

REACTIONS (1)
  - HYPERTENSION [None]
